FAERS Safety Report 9291168 (Version 2)
Quarter: 2013Q2

REPORT INFORMATION
  Report Type: Spontaneous
  Country: IT (occurrence: IT)
  Receive Date: 20130515
  Receipt Date: 20130612
  Transmission Date: 20140414
  Serious: Yes (Hospitalization, Other)
  Sender: FDA-Public Use
  Company Number: IT-AMGEN-ITASP2013034098

PATIENT
  Age: 72 Year
  Sex: Male

DRUGS (4)
  1. ENBREL [Suspect]
     Indication: PSORIATIC ARTHROPATHY
     Dosage: 50 MG, WEEKLY
     Route: 058
     Dates: start: 20121213, end: 20130124
  2. ENBREL [Suspect]
     Dosage: UNK
     Dates: start: 201304
  3. DELTACORTENE [Concomitant]
     Dosage: 5 MG, 1X/DAY
     Route: 065
  4. METHOTREXATE [Concomitant]
     Dosage: 7.5 MG, WEEKLY
     Route: 065

REACTIONS (2)
  - Lung neoplasm malignant [Unknown]
  - Neoplasm [Unknown]
